FAERS Safety Report 8981924 (Version 1)
Quarter: 2012Q4

REPORT INFORMATION
  Report Type: 
  Country: US (occurrence: US)
  Receive Date: 20121223
  Receipt Date: 20121223
  Transmission Date: 20130627
  Serious: No
  Sender: FDA-Public Use
  Company Number: US-009507513-1212USA004880

PATIENT
  Sex: Male

DRUGS (3)
  1. PEGINTRON [Suspect]
     Indication: HEPATITIS C
     Dosage: UNK
     Dates: start: 201211
  2. RIBAVIRIN [Suspect]
     Dosage: UNK
     Route: 048
     Dates: start: 201211
  3. TELAPREVIR [Suspect]
     Dosage: UNK
     Dates: start: 201211

REACTIONS (3)
  - Presyncope [Unknown]
  - Dizziness [Unknown]
  - Fatigue [Unknown]
